FAERS Safety Report 11142392 (Version 4)
Quarter: 2015Q3

REPORT INFORMATION
  Report Type: Spontaneous
  Country: JP (occurrence: JP)
  Receive Date: 20150527
  Receipt Date: 20150806
  Transmission Date: 20151125
  Serious: Yes (Hospitalization, Congenital Anomaly)
  Sender: FDA-Public Use
  Company Number: JP-SA-2015SA072373

PATIENT
  Age: 2 Day
  Sex: Female
  Weight: 3 kg

DRUGS (3)
  1. MYSLEE [Suspect]
     Active Substance: ZOLPIDEM TARTRATE
     Indication: FOETAL EXPOSURE DURING PREGNANCY
     Route: 064
     Dates: start: 20130804, end: 20140220
  2. PREDNISOLONE. [Suspect]
     Active Substance: PREDNISOLONE
     Indication: FOETAL EXPOSURE DURING PREGNANCY
     Route: 064
  3. PROGRAF [Suspect]
     Active Substance: TACROLIMUS\TACROLIMUS ANHYDROUS
     Indication: FOETAL EXPOSURE DURING PREGNANCY
     Route: 064
     Dates: start: 2013, end: 20140220

REACTIONS (2)
  - Foetal exposure during pregnancy [Unknown]
  - Jaundice neonatal [Recovering/Resolving]

NARRATIVE: CASE EVENT DATE: 20140222
